FAERS Safety Report 19418959 (Version 2)
Quarter: 2021Q3

REPORT INFORMATION
  Report Type: Spontaneous
  Country: US (occurrence: US)
  Receive Date: 20210615
  Receipt Date: 20210701
  Transmission Date: 20211014
  Serious: Yes (Other)
  Sender: FDA-Public Use
  Company Number: US-PFIZER INC-2021644204

PATIENT
  Age: 60 Year
  Sex: Female

DRUGS (6)
  1. IMMUNOGLOBULINS [Concomitant]
     Dosage: 80 MG OF IVIG EVERY 3 WEEKS (1.3 G/KG/3 WEEKS, WT 60 KG),
  2. IMMUNOGLOBULINS [Concomitant]
     Dosage: 60 MG (1G/KG/4 WEEKS, WT 50 KG).
  3. CARBOPLATIN. [Suspect]
     Active Substance: CARBOPLATIN
     Indication: OVARIAN CANCER STAGE III
     Dosage: AREA UNDER THE CURVE (AUC) 4 INSTEAD OF STANDARD 5
  4. PEGFILGRASTIM [Concomitant]
     Active Substance: PEGFILGRASTIM
     Indication: CHEMOTHERAPY SIDE EFFECT PROPHYLAXIS
     Dosage: UNK
  5. TAXOL [Suspect]
     Active Substance: PACLITAXEL
     Indication: OVARIAN CANCER STAGE III
     Dosage: 150 MG/M2, CYCLIC
  6. AVASTIN [Suspect]
     Active Substance: BEVACIZUMAB
     Indication: OVARIAN CANCER STAGE III
     Dosage: 15 MG/KG, CYCLIC

REACTIONS (1)
  - Urinary tract infection bacterial [Recovered/Resolved]
